FAERS Safety Report 9838963 (Version 1)
Quarter: 2013Q4

REPORT INFORMATION
  Report Type: Spontaneous
  Country: US (occurrence: None)
  Receive Date: 20131206
  Receipt Date: 20131206
  Transmission Date: 20140711
  Serious: Yes (Other)
  Sender: FDA-Public Use
  Company Number: 362264

PATIENT
  Age: 65 Year
  Sex: Female
  Weight: 136.08 kg

DRUGS (2)
  1. NOVOLOG FLEXPEN (INSULIN ASPART) SOLUTION FOR INJECTION, 100 U/ML [Suspect]
     Indication: TYPE 2 DIABETES MELLITUS
     Dosage: WITH MEALS
     Route: 058
     Dates: start: 2011
  2. LANTUS (INSULIN GLARGINE) [Concomitant]

REACTIONS (1)
  - Blood glucose increased [None]
